FAERS Safety Report 8962764 (Version 1)
Quarter: 2012Q4

REPORT INFORMATION
  Report Type: 
  Country: PT (occurrence: PT)
  Receive Date: 20121214
  Receipt Date: 20121214
  Transmission Date: 20130627
  Serious: Yes (Other)
  Sender: FDA-Public Use
  Company Number: PT-JNJFOC-20121204452

PATIENT
  Age: 38 Year
  Sex: Male

DRUGS (3)
  1. PALEXIA RETARD [Suspect]
     Indication: PAIN
     Route: 048
     Dates: start: 20121130, end: 20121201
  2. VOLTAREN [Concomitant]
     Indication: PRODUCT USED FOR UNKNOWN INDICATION
     Route: 065
     Dates: start: 20121125
  3. CIPROFLOXACIN [Concomitant]
     Indication: PRODUCT USED FOR UNKNOWN INDICATION
     Route: 065
     Dates: start: 20121127

REACTIONS (2)
  - Face oedema [Recovering/Resolving]
  - Oral discomfort [Recovering/Resolving]
